FAERS Safety Report 9444349 (Version 1)
Quarter: 2013Q3

REPORT INFORMATION
  Report Type: Spontaneous
  Country: US (occurrence: US)
  Receive Date: 20130807
  Receipt Date: 20130807
  Transmission Date: 20140515
  Serious: Yes (Hospitalization)
  Sender: FDA-Public Use
  Company Number: US-ELI_LILLY_AND_COMPANY-US201307010007

PATIENT
  Sex: Female

DRUGS (5)
  1. CYMBALTA [Suspect]
     Indication: DEPRESSION
     Dosage: UNK, UNKNOWN
     Route: 065
     Dates: start: 2011, end: 20130718
  2. ASPIRIN [Concomitant]
     Dosage: 325 MG, QD
     Route: 065
  3. ZOLOFT [Concomitant]
     Dosage: UNK, QD
     Route: 065
  4. SYNTHROID [Concomitant]
     Dosage: 50 UG, QD
     Route: 065
  5. POTASSIUM [Concomitant]
     Dosage: 30 MG, QD
     Route: 065

REACTIONS (8)
  - Headache [Unknown]
  - Hypoaesthesia [Unknown]
  - Balance disorder [Unknown]
  - Gait disturbance [Unknown]
  - Off label use [Unknown]
  - Pruritus [Unknown]
  - Scratch [Unknown]
  - Skin haemorrhage [Unknown]
